FAERS Safety Report 12511205 (Version 5)
Quarter: 2016Q4

REPORT INFORMATION
  Report Type: Report from Study
  Country: US (occurrence: US)
  Receive Date: 20160629
  Receipt Date: 20161223
  Transmission Date: 20170207
  Serious: Yes (Hospitalization)
  Sender: FDA-Public Use
  Company Number: US-CELGENEUS-USA-2016066700

PATIENT
  Age: 55 Year
  Sex: Male
  Weight: 110.69 kg

DRUGS (9)
  1. REVLIMID [Suspect]
     Active Substance: LENALIDOMIDE
     Dosage: 5MG
     Route: 048
     Dates: start: 20150615, end: 20160505
  2. DECADRON [Suspect]
     Active Substance: DEXAMETHASONE
     Indication: PLASMA CELL MYELOMA
     Dosage: 40MG
     Route: 048
     Dates: start: 20131108, end: 20131112
  3. REVLIMID [Suspect]
     Active Substance: LENALIDOMIDE
     Dosage: 2.5MG
     Route: 048
     Dates: start: 20160506
  4. REVLIMID [Suspect]
     Active Substance: LENALIDOMIDE
     Indication: PLASMA CELL MYELOMA
     Dosage: 25MG
     Route: 048
     Dates: start: 20131108, end: 20131112
  5. REVLIMID [Suspect]
     Active Substance: LENALIDOMIDE
     Dosage: 150MG
     Route: 048
     Dates: start: 20131211, end: 20140101
  6. VELCADE [Suspect]
     Active Substance: BORTEZOMIB
     Indication: PLASMA CELL MYELOMA
     Dosage: 1.3MG/SQ. METER
     Route: 048
     Dates: start: 20131108, end: 20131112
  7. REVLIMID [Suspect]
     Active Substance: LENALIDOMIDE
     Dosage: 5MG
     Route: 048
     Dates: start: 20141202, end: 20150615
  8. REVLIMID [Suspect]
     Active Substance: LENALIDOMIDE
     Dosage: 10MG
     Route: 048
     Dates: start: 20140325, end: 20141117
  9. ALKERAN [Suspect]
     Active Substance: MELPHALAN
     Indication: PLASMA CELL MYELOMA
     Route: 041
     Dates: start: 201311, end: 201311

REACTIONS (2)
  - Mucosal inflammation [Recovered/Resolved]
  - Plasma cell myeloma [Recovered/Resolved]

NARRATIVE: CASE EVENT DATE: 20131118
